FAERS Safety Report 15799644 (Version 1)
Quarter: 2019Q1

REPORT INFORMATION
  Report Type: Spontaneous
  Country: CN (occurrence: CN)
  Receive Date: 20190108
  Receipt Date: 20190108
  Transmission Date: 20190417
  Serious: Yes (Other)
  Sender: FDA-Public Use
  Company Number: CN-ASTRAZENECA-2019SE03643

PATIENT
  Sex: Female
  Weight: 11 kg

DRUGS (3)
  1. SODIUM CHLORIDE. [Concomitant]
     Active Substance: SODIUM CHLORIDE
     Indication: ILL-DEFINED DISORDER
     Route: 055
  2. BUDESONIDE SUSPENSION [Suspect]
     Active Substance: BUDESONIDE
     Indication: ASTHMA
     Route: 055
     Dates: start: 20181011, end: 20181011
  3. BUDESONIDE SUSPENSION [Suspect]
     Active Substance: BUDESONIDE
     Indication: INFLAMMATION
     Route: 055
     Dates: start: 20181011, end: 20181011

REACTIONS (2)
  - Dyspnoea [Recovering/Resolving]
  - Tachypnoea [Recovering/Resolving]
